FAERS Safety Report 9749256 (Version 2)
Quarter: 2013Q4

REPORT INFORMATION
  Report Type: Spontaneous
  Country: US (occurrence: US)
  Receive Date: 20131212
  Receipt Date: 20131212
  Transmission Date: 20140711
  Serious: No
  Sender: FDA-Public Use
  Company Number: US-TEVA-394524USA

PATIENT
  Age: 28 Year
  Sex: Female
  Weight: 83.99 kg

DRUGS (1)
  1. PARAGARD 380A [Suspect]
     Indication: CONTRACEPTION
     Route: 015
     Dates: start: 20080306, end: 20130325

REACTIONS (2)
  - Pelvic pain [Not Recovered/Not Resolved]
  - Medical device complication [Not Recovered/Not Resolved]
